FAERS Safety Report 5958347-3 (Version None)
Quarter: 2008Q4

REPORT INFORMATION
  Report Type: 
  Country: None (occurrence: None)
  Receive Date: 20081112
  Receipt Date: 20081028
  Transmission Date: 20090506
  Serious: Yes (Other)
  Sender: FDA-Public Use
  Company Number: CHPA2008US18663

PATIENT
  Age: 68 Year
  Sex: Female
  Weight: 79.4 kg

DRUGS (1)
  1. EXCEDRIN EXTRA STRENGTH (NCH) (CAFFEINE CITRATE, ACETYLSALICYLIC ACID, [Suspect]
     Indication: HEADACHE
     Dosage: 0.5 DF, ONCE, SINGLE, ORAL
     Route: 048
     Dates: start: 20081026, end: 20081026

REACTIONS (1)
  - BLOOD GLUCOSE INCREASED [None]
